FAERS Safety Report 8611503 (Version 2)
Quarter: 2012Q4

REPORT INFORMATION
  Report Type: Report from Study
  Country: JP (occurrence: JP)
  Receive Date: 20120613
  Receipt Date: 20121010
  Transmission Date: 20130627
  Serious: Yes (Hospitalization, Other)
  Sender: FDA-Public Use
  Company Number: JP-JNJFOC-20120603591

PATIENT
  Age: 15 Year
  Sex: Male
  Weight: 52 kg

DRUGS (20)
  1. REMICADE [Suspect]
     Indication: COLITIS ULCERATIVE
     Route: 042
     Dates: start: 20111126
  2. REMICADE [Suspect]
     Indication: COLITIS ULCERATIVE
     Route: 042
     Dates: start: 20110610
  3. REMICADE [Suspect]
     Indication: COLITIS ULCERATIVE
     Route: 042
     Dates: start: 20110806
  4. REMICADE [Suspect]
     Indication: COLITIS ULCERATIVE
     Route: 042
     Dates: start: 20111001
  5. REMICADE [Suspect]
     Indication: COLITIS ULCERATIVE
     Route: 042
     Dates: start: 20110419
  6. REMICADE [Suspect]
     Indication: COLITIS ULCERATIVE
     Route: 042
     Dates: start: 20120107
  7. REMICADE [Suspect]
     Indication: COLITIS ULCERATIVE
     Route: 042
     Dates: start: 20120208
  8. REMICADE [Suspect]
     Indication: COLITIS ULCERATIVE
     Route: 042
     Dates: start: 20110326
  9. REMICADE [Suspect]
     Indication: COLITIS ULCERATIVE
     Route: 042
     Dates: start: 20110314
  10. PENTASA [Suspect]
     Indication: COLITIS ULCERATIVE
     Route: 048
     Dates: end: 20111217
  11. PENTASA [Suspect]
     Indication: COLITIS ULCERATIVE
     Route: 048
     Dates: start: 20120204, end: 20120206
  12. ASACOL [Concomitant]
     Indication: COLITIS ULCERATIVE
     Route: 048
     Dates: start: 20111218, end: 20120203
  13. IMURAN [Concomitant]
     Indication: COLITIS ULCERATIVE
     Dosage: initiated prior to infliximab
     Route: 048
  14. REBAMIPIDE [Concomitant]
     Indication: PROPHYLAXIS
     Dosage: initiated prior to infliximab
     Route: 048
  15. MIYA-BM [Concomitant]
     Indication: COLITIS ULCERATIVE
     Dosage: initiated before infliximab
     Route: 048
  16. PARIET [Concomitant]
     Indication: PROPHYLAXIS
     Dosage: initiated before infliximab
     Route: 048
  17. ALEROFF [Concomitant]
     Indication: RHINITIS ALLERGIC
     Dosage: initiated before infliximab
     Route: 048
  18. TRANCOLON [Concomitant]
     Indication: COLITIS ULCERATIVE
     Dosage: initiated before infliximab
     Route: 048
  19. FLAGYL [Concomitant]
     Indication: COLITIS ULCERATIVE
     Dosage: initiated before infliximab
     Route: 048
  20. CALONAL [Concomitant]
     Indication: COLITIS ULCERATIVE
     Dosage: initiated before infliximab
     Route: 048

REACTIONS (4)
  - Pancreatitis acute [Recovered/Resolved]
  - Pneumonia [Recovered/Resolved]
  - Colitis ulcerative [Recovered/Resolved]
  - Drug ineffective [Unknown]
